FAERS Safety Report 4869577-6 (Version None)
Quarter: 2005Q4

REPORT INFORMATION
  Report Type: 
  Country: None (occurrence: None)
  Receive Date: 20051230
  Receipt Date: 20051220
  Transmission Date: 20060501
  Serious: Yes (Hospitalization)
  Sender: FDA-Public Use
  Company Number: FR-SANOFI-SYNTHELABO-A02200503374

PATIENT
  Age: 91 Year
  Sex: Female

DRUGS (9)
  1. XATRAL [Suspect]
     Indication: DRUG USE FOR UNKNOWN INDICATION
     Route: 048
     Dates: start: 20050715
  2. PREVISCAN [Interacting]
     Indication: DRUG USE FOR UNKNOWN INDICATION
     Dosage: 1/4 TO 1/2 TABLET DAILY
     Route: 048
     Dates: start: 20050615
  3. TENORMIN [Interacting]
     Route: 048
     Dates: start: 20050715
  4. AMLOR [Interacting]
     Route: 048
     Dates: start: 20050715
  5. PROZAC [Interacting]
     Indication: DRUG USE FOR UNKNOWN INDICATION
     Route: 048
     Dates: start: 20050908
  6. MOPRAL [Concomitant]
     Route: 048
  7. FORLAX [Concomitant]
     Dosage: UNK
     Route: 048
     Dates: start: 20050715
  8. TARDYFERON [Concomitant]
     Dosage: UNK
     Route: 048
     Dates: start: 20050715
  9. OROCAL D3 [Concomitant]
     Dosage: UNK
     Route: 048
     Dates: start: 20050715

REACTIONS (5)
  - DRUG INTERACTION POTENTIATION [None]
  - FALL [None]
  - HYPOTENSION [None]
  - INTERNATIONAL NORMALISED RATIO INCREASED [None]
  - RENAL FAILURE [None]
